FAERS Safety Report 16046027 (Version 1)
Quarter: 2019Q1

REPORT INFORMATION
  Report Type: Spontaneous
  Country: FR (occurrence: FR)
  Receive Date: 20190307
  Receipt Date: 20190307
  Transmission Date: 20190418
  Serious: Yes (Hospitalization)
  Sender: FDA-Public Use
  Company Number: FR-ACCORD-111463

PATIENT
  Age: 69 Year
  Sex: Male
  Weight: 132 kg

DRUGS (12)
  1. KARDEGIC [Concomitant]
     Active Substance: ASPIRIN DL-LYSINE
  2. UN-ALFA [Concomitant]
     Active Substance: ALFACALCIDOL
  3. PREVISCAN [Concomitant]
  4. ALLOPURINOL/ALLOPURINOL SODIUM [Concomitant]
  5. ZOLPIDEM/ZOLPIDEM TARTRATE [Concomitant]
  6. FUROSEMIDE. [Suspect]
     Active Substance: FUROSEMIDE
     Indication: HYPERTENSION
     Route: 048
     Dates: end: 20151123
  7. METOPROLOL. [Concomitant]
     Active Substance: METOPROLOL
  8. RAMIPRIL. [Suspect]
     Active Substance: RAMIPRIL
     Indication: HYPERTENSION
     Route: 048
     Dates: end: 20151123
  9. TADENAN [Concomitant]
     Active Substance: PYGEUM
  10. INSPRA [Suspect]
     Active Substance: EPLERENONE
     Indication: HYPERTENSION
     Route: 048
  11. PRAVASTATIN. [Concomitant]
     Active Substance: PRAVASTATIN
  12. CALCIDIA [Concomitant]
     Active Substance: CALCIUM CARBONATE

REACTIONS (1)
  - Acute kidney injury [Recovered/Resolved]

NARRATIVE: CASE EVENT DATE: 20151123
